FAERS Safety Report 5888047-X (Version None)
Quarter: 2008Q3

REPORT INFORMATION
  Report Type: 
  Country: None (occurrence: None)
  Receive Date: 20080917
  Receipt Date: 20080917
  Transmission Date: 20090109
  Serious: No
  Sender: FDA-Public Use
  Company Number: None

PATIENT
  Age: 40 Year
  Sex: Female
  Weight: 72.5755 kg

DRUGS (1)
  1. CHANTIX [Suspect]
     Indication: SMOKING CESSATION THERAPY
     Dosage: ONE PILL TWICE A DAY PO
     Route: 048
     Dates: start: 20070727, end: 20070827

REACTIONS (4)
  - AFFECTIVE DISORDER [None]
  - DYSPNOEA [None]
  - HALLUCINATION [None]
  - SLEEP DISORDER [None]
